FAERS Safety Report 8381035-3 (Version None)
Quarter: 2012Q1

REPORT INFORMATION
  Report Type: 
  Country: None (occurrence: None)
  Receive Date: 20120323
  Receipt Date: 20110412
  Transmission Date: 20120608
  Serious: Yes (Hospitalization, Other)
  Sender: FDA-Public Use
  Company Number: 163-21880-11032874

PATIENT
  Age: 57 Year
  Sex: Female
  Weight: 85.7 kg

DRUGS (6)
  1. ZOMETA [Concomitant]
  2. ARANESP [Concomitant]
  3. LEVAQUIN [Suspect]
     Indication: PNEUMONITIS
     Dates: start: 20110301
  4. VELCADE [Concomitant]
  5. REVLIMID [Suspect]
     Indication: MULTIPLE MYELOMA
     Dosage: 10 MG, DAILY FOR 14 EVERY 21 DAYS, PO
     Route: 048
     Dates: start: 20081222, end: 20110313
  6. VITAMIN D [Concomitant]

REACTIONS (2)
  - PNEUMONIA [None]
  - RASH [None]
